FAERS Safety Report 8918068 (Version 3)
Quarter: 2015Q4

REPORT INFORMATION
  Report Type: Spontaneous
  Country: US (occurrence: US)
  Receive Date: 20121120
  Receipt Date: 20151201
  Transmission Date: 20160305
  Serious: No
  Sender: FDA-Public Use
  Company Number: US-ASTRAZENECA-2012SE14435

PATIENT
  Age: 37 Year
  Sex: Female

DRUGS (2)
  1. NEXIUM [Suspect]
     Active Substance: ESOMEPRAZOLE MAGNESIUM
     Indication: GASTROOESOPHAGEAL REFLUX DISEASE
     Route: 048
  2. NEXIUM [Suspect]
     Active Substance: ESOMEPRAZOLE MAGNESIUM
     Indication: GASTROOESOPHAGEAL REFLUX DISEASE
     Dosage: TWO TIMES A DAY
     Route: 048

REACTIONS (9)
  - Off label use [Unknown]
  - Pain [Unknown]
  - Discomfort [Unknown]
  - Erosive oesophagitis [Unknown]
  - Chest pain [Unknown]
  - Hiatus hernia [Not Recovered/Not Resolved]
  - Back pain [Unknown]
  - Emotional distress [Not Recovered/Not Resolved]
  - Drug dose omission [Unknown]
